FAERS Safety Report 5570068-8 (Version None)
Quarter: 2007Q4

REPORT INFORMATION
  Report Type: 
  Country: None (occurrence: None)
  Receive Date: 20071220
  Receipt Date: 20071211
  Transmission Date: 20080405
  Serious: Yes (Hospitalization)
  Sender: FDA-Public Use
  Company Number: NL-PFIZER INC-2007104871

PATIENT
  Sex: Male
  Weight: 82 kg

DRUGS (4)
  1. SOLU-MEDROL [Suspect]
     Indication: MULTIPLE SCLEROSIS RELAPSE
     Route: 042
     Dates: start: 20070806, end: 20070810
  2. DEXAMETHASONE TAB [Suspect]
     Indication: MULTIPLE SCLEROSIS RELAPSE
     Route: 048
     Dates: start: 20070811, end: 20070811
  3. PAROXETIN [Suspect]
     Indication: DEPRESSION
     Route: 048
  4. REBIF [Concomitant]
     Route: 030

REACTIONS (1)
  - ATRIAL FIBRILLATION [None]
